FAERS Safety Report 7437794-7 (Version None)
Quarter: 2011Q2

REPORT INFORMATION
  Report Type: 
  Country: None (occurrence: None)
  Receive Date: 20110426
  Receipt Date: 20110411
  Transmission Date: 20111010
  Serious: Yes (Other)
  Sender: FDA-Public Use
  Company Number: ES-GENENTECH-317059

PATIENT
  Age: 40 Year
  Sex: Male

DRUGS (1)
  1. XOLAIR [Suspect]
     Indication: NASAL POLYPS
     Dosage: 225 MG, Q2W
     Route: 058
     Dates: start: 20110228

REACTIONS (1)
  - RENAL COLIC [None]
